FAERS Safety Report 13885612 (Version 5)
Quarter: 2018Q1

REPORT INFORMATION
  Report Type: Spontaneous
  Country: US (occurrence: US)
  Receive Date: 20170821
  Receipt Date: 20180115
  Transmission Date: 20180508
  Serious: No
  Sender: FDA-Public Use
  Company Number: US-PFIZER INC-2017358429

PATIENT
  Age: 73 Year
  Sex: Female
  Weight: 53.97 kg

DRUGS (5)
  1. FASLODEX [Concomitant]
     Active Substance: FULVESTRANT
     Indication: BREAST CANCER METASTATIC
     Dosage: UNK, MONTHLY (ONE SHOT A MONTH IN THE MUSCLE IN EACH BUTT CHEEK)
     Dates: start: 201607
  2. IBRANCE [Suspect]
     Active Substance: PALBOCICLIB
     Dosage: 100 MG, CYCLIC [DAILY FOR 21 DAYS THEN OFF FOR 7 DAYS]
     Route: 048
     Dates: start: 201607
  3. XGEVA [Concomitant]
     Active Substance: DENOSUMAB
     Indication: BREAST CANCER METASTATIC
     Dosage: UNK, MONTHLY
     Dates: end: 201706
  4. XGEVA [Concomitant]
     Active Substance: DENOSUMAB
     Dosage: UNK, EVERY 3 MONTHS
  5. IBRANCE [Suspect]
     Active Substance: PALBOCICLIB
     Indication: BREAST CANCER METASTATIC
     Dosage: 100 MG, 1X/DAY (ONCE DAILY FOR 21 DAYS)
     Dates: start: 201607, end: 201607

REACTIONS (7)
  - Toothache [Recovered/Resolved]
  - Gingival disorder [Recovering/Resolving]
  - Tooth disorder [Recovering/Resolving]
  - White blood cell count decreased [Recovering/Resolving]
  - Gingival pain [Recovered/Resolved]
  - Feeding disorder [Recovering/Resolving]
  - Platelet count decreased [Recovering/Resolving]

NARRATIVE: CASE EVENT DATE: 201607
